FAERS Safety Report 16258825 (Version 1)
Quarter: 2019Q2

REPORT INFORMATION
  Report Type: Spontaneous
  Country: PL (occurrence: PL)
  Receive Date: 20190501
  Receipt Date: 20190501
  Transmission Date: 20190711
  Serious: Yes (Other)
  Sender: FDA-Public Use
  Company Number: PL-TEVA-2019-PL-1043270

PATIENT
  Age: 78 Year
  Sex: Male
  Weight: 87 kg

DRUGS (4)
  1. CISPLATIN TEVA [Suspect]
     Active Substance: CISPLATIN
     Indication: BLADDER CANCER
     Dates: start: 20141030, end: 20141030
  2. DOXORUBICIN EBEWE [Suspect]
     Active Substance: DOXORUBICIN
     Indication: BLADDER CANCER
     Route: 042
     Dates: start: 20141030, end: 20141030
  3. VINBLASTIN RICHTER [Suspect]
     Active Substance: VINBLASTINE SULFATE
     Indication: BLADDER CANCER
     Route: 042
     Dates: start: 20141030, end: 20141030
  4. METOTREXAT EBEWE [Suspect]
     Active Substance: METHOTREXATE
     Indication: BLADDER CANCER
     Route: 042
     Dates: start: 20141029, end: 20141112

REACTIONS (1)
  - Embolism [Recovering/Resolving]

NARRATIVE: CASE EVENT DATE: 20141203
